FAERS Safety Report 5323555-1 (Version None)
Quarter: 2007Q2

REPORT INFORMATION
  Report Type: 
  Country: None (occurrence: None)
  Receive Date: 20070509
  Receipt Date: 20070509
  Transmission Date: 20071010
  Serious: Yes (Other)
  Sender: FDA-Public Use
  Company Number: None

PATIENT
  Sex: Male
  Weight: 23.64 kg

DRUGS (3)
  1. DITROPAN XL [Suspect]
     Dosage: 15MG DAILY
  2. OXYBUTYNIN CHLORIDE [Concomitant]
  3. OXYTROL [Concomitant]

REACTIONS (1)
  - DRUG INEFFECTIVE [None]
